FAERS Safety Report 8985775 (Version 1)
Quarter: 2012Q4

REPORT INFORMATION
  Report Type: 
  Country: JP (occurrence: JP)
  Receive Date: 20121226
  Receipt Date: 20121226
  Transmission Date: 20130627
  Serious: Yes (Death)
  Sender: FDA-Public Use
  Company Number: JP-BAYER-2011-103873

PATIENT
  Age: 70 Year
  Sex: Male

DRUGS (5)
  1. NEXAVAR [Suspect]
     Indication: CARCINOMA HEPATOCELLULAR
     Dosage: 800 mg, UNK
     Route: 048
     Dates: start: 20110108
  2. NEXAVAR [Suspect]
     Indication: CARCINOMA HEPATOCELLULAR
     Dosage: 600 mg, daily
     Route: 048
  3. SULFONYLUREA [Concomitant]
     Indication: DIABETES MELLITUS
     Route: 048
  4. BIGUANIDES [Concomitant]
     Indication: DIABETES MELLITUS
     Route: 048
  5. ALPHA GLUCOSIDASE INHIBITORS [Concomitant]
     Indication: DIABETES MELLITUS
     Route: 048

REACTIONS (2)
  - Hepatocellular carcinoma [Fatal]
  - Decreased appetite [Recovering/Resolving]
